FAERS Safety Report 6041717-5 (Version None)
Quarter: 2009Q1

REPORT INFORMATION
  Report Type: 
  Country: None (occurrence: None)
  Receive Date: 20090116
  Receipt Date: 20090108
  Transmission Date: 20090719
  Serious: Yes (Death, Hospitalization)
  Sender: FDA-Public Use
  Company Number: US-PFIZER INC-2008093604

PATIENT
  Sex: Male
  Weight: 91.61 kg

DRUGS (1)
  1. SILDENAFIL CITRATE [Suspect]
     Indication: IDIOPATHIC PULMONARY FIBROSIS
     Dosage: FREQUENCY: TID
     Dates: start: 20080807, end: 20081023

REACTIONS (1)
  - DISEASE PROGRESSION [None]
